FAERS Safety Report 4527219-3 (Version None)
Quarter: 2004Q4

REPORT INFORMATION
  Report Type: 
  Country: None (occurrence: None)
  Receive Date: 20041215
  Receipt Date: 20041208
  Transmission Date: 20050328
  Serious: Yes (Death)
  Sender: FDA-Public Use
  Company Number: PHBS2004JP16528

PATIENT
  Age: 63 Year
  Sex: Female

DRUGS (2)
  1. DEPROMEL [Concomitant]
     Route: 048
  2. VOLTAREN [Suspect]
     Indication: SCIATICA
     Dosage: 50 TO 100 MG/DAY
     Route: 054
     Dates: start: 20041125, end: 20041201

REACTIONS (5)
  - ALANINE AMINOTRANSFERASE INCREASED [None]
  - ASPARTATE AMINOTRANSFERASE INCREASED [None]
  - BLOOD BILIRUBIN INCREASED [None]
  - DISSEMINATED INTRAVASCULAR COAGULATION [None]
  - GAMMA-GLUTAMYLTRANSFERASE INCREASED [None]
